FAERS Safety Report 16002379 (Version 1)
Quarter: 2019Q1

REPORT INFORMATION
  Report Type: Spontaneous
  Country: US (occurrence: US)
  Receive Date: 20190225
  Receipt Date: 20190225
  Transmission Date: 20190418
  Serious: Yes (Hospitalization, Other)
  Sender: FDA-Public Use
  Company Number: US-BAXTER-2019BAX003825

PATIENT
  Sex: Female

DRUGS (15)
  1. PACLITAXEL. [Suspect]
     Active Substance: PACLITAXEL
     Indication: BREAST CANCER
     Dosage: CYCLE 1
     Route: 065
     Dates: start: 20151119
  2. DOXORUBICIN [Suspect]
     Active Substance: DOXORUBICIN
     Dosage: AC DOSE REDUCED BY 20%, CYCLE 2
     Route: 065
     Dates: end: 20151105
  3. GEMZAR [Suspect]
     Active Substance: GEMCITABINE HYDROCHLORIDE
     Indication: BREAST CANCER
     Dosage: DAY AND DAY 8 EVERY 21 DAYS FOR 3 CYCLES
     Route: 065
     Dates: start: 20151210
  4. DOXORUBICIN [Suspect]
     Active Substance: DOXORUBICIN
     Indication: BREAST CANCER
     Dosage: CYCLE 1
     Route: 065
  5. IBRANCE [Suspect]
     Active Substance: PALBOCICLIB
     Dosage: DOSE DECREASED
     Route: 065
     Dates: start: 201803
  6. TAMOXIFEN [Suspect]
     Active Substance: TAMOXIFEN
     Indication: BREAST CANCER
     Route: 065
     Dates: start: 20160501
  7. CYCLOPHOSPHAMIDE FOR INJECTION, USP [Suspect]
     Active Substance: CYCLOPHOSPHAMIDE
     Indication: BREAST CANCER
     Dosage: CYCLE 1
     Route: 065
  8. CARBOPLATIN. [Suspect]
     Active Substance: CARBOPLATIN
     Indication: BREAST CANCER
     Dosage: DAY AND DAY 8 EVERY 21 DAYS FOR 3 CYCLES
     Route: 065
     Dates: start: 20151210
  9. IBRANCE [Suspect]
     Active Substance: PALBOCICLIB
     Indication: BREAST CANCER
     Route: 065
     Dates: start: 20171211
  10. IBRANCE [Suspect]
     Active Substance: PALBOCICLIB
     Dosage: DOSE DECREASED
     Route: 065
  11. ERIBULIN [Suspect]
     Active Substance: ERIBULIN
     Indication: INVASIVE DUCTAL BREAST CARCINOMA
     Dosage: DAYS 1 AND 8 OF EACH 21 DAY CYCLE, COMPLETED 6 CYCLES
     Route: 065
     Dates: start: 20170807, end: 20171128
  12. CYCLOPHOSPHAMIDE FOR INJECTION, USP [Suspect]
     Active Substance: CYCLOPHOSPHAMIDE
     Dosage: AC DOSE REDUCED BY 20%, CYCLE 2
     Route: 065
     Dates: end: 20151105
  13. ANASTROZOLE. [Suspect]
     Active Substance: ANASTROZOLE
     Indication: BREAST CANCER
     Route: 065
     Dates: start: 20171201
  14. IBRANCE [Suspect]
     Active Substance: PALBOCICLIB
     Route: 065
     Dates: start: 201803
  15. XGEVA [Suspect]
     Active Substance: DENOSUMAB
     Indication: BREAST CANCER
     Route: 065
     Dates: start: 20170926, end: 20180323

REACTIONS (6)
  - Febrile neutropenia [Unknown]
  - Spinal column stenosis [Unknown]
  - Metastatic neoplasm [Unknown]
  - Neuropathy peripheral [Recovered/Resolved]
  - Pyrexia [Unknown]
  - Dyspnoea [Unknown]

NARRATIVE: CASE EVENT DATE: 20170720
